FAERS Safety Report 13676104 (Version 1)
Quarter: 2017Q2

REPORT INFORMATION
  Report Type: Spontaneous
  Country: US (occurrence: US)
  Receive Date: 20170622
  Receipt Date: 20170622
  Transmission Date: 20170830
  Serious: No
  Sender: FDA-Public Use
  Company Number: US-LUPIN PHARMACEUTICALS INC.-2017-01193

PATIENT
  Age: 31 Year
  Sex: Female
  Weight: 59 kg

DRUGS (18)
  1. VORICONAZOLE. [Interacting]
     Active Substance: VORICONAZOLE
     Dosage: UNK
     Route: 065
  2. METHYLPREDNISOLONE. [Concomitant]
     Active Substance: METHYLPREDNISOLONE
     Indication: ACUTE MYELOID LEUKAEMIA
     Dosage: UNKNOWN
     Route: 065
  3. MYCOPHENOLATE [Concomitant]
     Active Substance: MYCOPHENOLIC ACID
     Indication: PROPHYLAXIS AGAINST GRAFT VERSUS HOST DISEASE
     Dosage: UNKNOWN
     Route: 065
  4. VANCOMYCIN [Concomitant]
     Active Substance: VANCOMYCIN
     Indication: PYREXIA
  5. FLUDARABINE [Concomitant]
     Active Substance: FLUDARABINE PHOSPHATE
     Indication: ACUTE MYELOID LEUKAEMIA
     Dosage: UNKNOWN
     Route: 065
  6. SIROLIMUS. [Interacting]
     Active Substance: SIROLIMUS
     Dosage: UNK
     Route: 065
  7. VANCOMYCIN [Concomitant]
     Active Substance: VANCOMYCIN
     Indication: PAIN IN EXTREMITY
  8. LINEZOLID. [Concomitant]
     Active Substance: LINEZOLID
     Indication: INFECTION PROPHYLAXIS
     Dosage: 600 MG, BID
     Route: 042
  9. SIROLIMUS. [Interacting]
     Active Substance: SIROLIMUS
     Dosage: 16-18MG DAILY
     Route: 065
  10. CYCLOPHOSPHAMIDE. [Concomitant]
     Active Substance: CYCLOPHOSPHAMIDE
     Indication: ACUTE MYELOID LEUKAEMIA
     Dosage: UNKNOWN
     Route: 065
  11. ANTI-THYMOCYTE GLOBULIN [Concomitant]
     Active Substance: THYMOCYTE IMMUNE GLOBULIN NOS
     Indication: ACUTE MYELOID LEUKAEMIA
     Dosage: UNKNOWN
     Route: 065
  12. VORICONAZOLE. [Interacting]
     Active Substance: VORICONAZOLE
     Indication: ANTIFUNGAL PROPHYLAXIS
     Dosage: 200 MG, BID
     Route: 048
  13. SIROLIMUS. [Interacting]
     Active Substance: SIROLIMUS
     Dosage: UNK
     Route: 065
  14. CEFEPIME [Concomitant]
     Active Substance: CEFEPIME HYDROCHLORIDE
     Indication: PYREXIA
  15. CEFEPIME [Concomitant]
     Active Substance: CEFEPIME HYDROCHLORIDE
     Indication: PAIN IN EXTREMITY
  16. RIFAMPIN. [Suspect]
     Active Substance: RIFAMPIN
     Indication: INFECTION PROPHYLAXIS
     Dosage: 450 MG, BID
     Route: 042
  17. OFLOXACIN. [Concomitant]
     Active Substance: OFLOXACIN
     Indication: STAPHYLOCOCCAL INFECTION
  18. SIROLIMUS. [Interacting]
     Active Substance: SIROLIMUS
     Indication: PROPHYLAXIS AGAINST GRAFT VERSUS HOST DISEASE
     Dosage: THERAPEUTIC TROUGH GOAL 3-12MCG/L (TAPERING DOSE)
     Route: 065

REACTIONS (3)
  - Therapeutic response decreased [Unknown]
  - Drug level fluctuating [Unknown]
  - Drug interaction [Unknown]
